FAERS Safety Report 18237554 (Version 1)
Quarter: 2020Q3

REPORT INFORMATION
  Report Type: Spontaneous
  Country: FR (occurrence: FR)
  Receive Date: 20200907
  Receipt Date: 20200907
  Transmission Date: 20201103
  Serious: Yes (Other)
  Sender: FDA-Public Use
  Company Number: FR-SUN PHARMACEUTICAL INDUSTRIES LTD-2020R1-259562

PATIENT
  Age: 61 Year
  Sex: Female

DRUGS (1)
  1. ISOTRETINOIN. [Suspect]
     Active Substance: ISOTRETINOIN
     Indication: REACTIVE ANGIOENDOTHELIOMATOSIS
     Dosage: 10 MILLIGRAM, DAILY
     Route: 065

REACTIONS (2)
  - Affective disorder [Unknown]
  - Drug ineffective [Unknown]
